FAERS Safety Report 22285072 (Version 1)
Quarter: 2023Q2

REPORT INFORMATION
  Report Type: Spontaneous
  Country: US (occurrence: None)
  Receive Date: 20230503
  Receipt Date: 20230503
  Transmission Date: 20230721
  Serious: No
  Sender: FDA-Public Use
  Company Number: None

PATIENT
  Age: 61 Year
  Sex: Female

DRUGS (2)
  1. OTEZLA [Suspect]
     Active Substance: APREMILAST
     Indication: Psoriasis
     Dosage: FREQUENCY : TWICE A DAY;?
     Route: 048
     Dates: start: 202301
  2. TAZORAC [Concomitant]
     Active Substance: TAZAROTENE

REACTIONS (4)
  - Abdominal discomfort [None]
  - Peritonsillar abscess [None]
  - Job dissatisfaction [None]
  - Alopecia [None]

NARRATIVE: CASE EVENT DATE: 20230503
